FAERS Safety Report 19607047 (Version 4)
Quarter: 2022Q1

REPORT INFORMATION
  Report Type: Spontaneous
  Country: US (occurrence: None)
  Receive Date: 20210726
  Receipt Date: 20220304
  Transmission Date: 20220423
  Serious: Yes (Other)
  Sender: FDA-Public Use
  Company Number: US-ROCHE-2851801

PATIENT
  Sex: Female

DRUGS (2)
  1. XELODA [Suspect]
     Active Substance: CAPECITABINE
     Indication: Product used for unknown indication
     Route: 048
  2. TUKYSA [Suspect]
     Active Substance: TUCATINIB
     Indication: Breast cancer female
     Route: 065

REACTIONS (7)
  - Nausea [Unknown]
  - Fatigue [Unknown]
  - Platelet count increased [Unknown]
  - Brain neoplasm [Unknown]
  - Neuropathy peripheral [Unknown]
  - Neoplasm progression [Unknown]
  - Product dose omission issue [Unknown]
